FAERS Safety Report 4990238-7 (Version None)
Quarter: 2006Q2

REPORT INFORMATION
  Report Type: 
  Country: None (occurrence: None)
  Receive Date: 20060501
  Receipt Date: 20060501
  Transmission Date: 20061013
  Serious: Yes (Death, Hospitalization)
  Sender: FDA-Public Use
  Company Number: None

PATIENT
  Age: 70 Year
  Sex: Male

DRUGS (2)
  1. VELCADE [Suspect]
     Indication: DIFFUSE LARGE B-CELL LYMPHOMA
     Dosage: 1.3 MG/M2  (THERAPY DATES: DAY 1 + 4)
  2. R-CHOP [Suspect]
     Indication: DIFFUSE LARGE B-CELL LYMPHOMA

REACTIONS (5)
  - HEPATIC FAILURE [None]
  - HEPATIC LESION [None]
  - HEPATIC NEOPLASM MALIGNANT [None]
  - OEDEMA PERIPHERAL [None]
  - THROMBOCYTOPENIA [None]
